FAERS Safety Report 12128030 (Version 2)
Quarter: 2016Q1

REPORT INFORMATION
  Report Type: Report from Study
  Country: US (occurrence: US)
  Receive Date: 20160229
  Receipt Date: 20160324
  Transmission Date: 20160526
  Serious: Yes (Hospitalization)
  Sender: FDA-Public Use
  Company Number: US-ASTRAZENECA-2016SE11927

PATIENT
  Age: 49 Year
  Sex: Female

DRUGS (29)
  1. ADVAIR HFA [Concomitant]
     Active Substance: FLUTICASONE PROPIONATE\SALMETEROL XINAFOATE
     Dosage: 250/50 1 PUFF TWO TIMES
     Route: 055
  2. LIDODERM [Concomitant]
     Active Substance: LIDOCAINE
     Indication: BREAST PAIN
     Dosage: 700 MG/PATCH, 1 PATCH ONTO THE SKIN ONCE DAILY, REOVE WITHIN 12 HOURS
     Route: 062
  3. MAALOX MAX [Concomitant]
     Active Substance: ALUMINUM HYDROXIDE\DIMETHICONE\MAGNESIUM HYDROXIDE
     Route: 048
  4. COMPAZINE [Concomitant]
     Active Substance: PROCHLORPERAZINE MALEATE
     Dosage: 10 MG Q6H PRN
     Route: 048
  5. DUO-NAB [Concomitant]
     Dosage: 0.5-2.5MG/3 ML Q6H WHILE AWAKE
  6. ALBUTEROL SULFATE. [Concomitant]
     Active Substance: ALBUTEROL SULFATE
     Indication: WHEEZING
     Dosage: NEBULIZATION, 2.5 MG/3ML Q6PRN
  7. LYNPARZA [Suspect]
     Active Substance: OLAPARIB
     Indication: BREAST CANCER FEMALE
     Route: 048
     Dates: start: 201601
  8. DILAUDID [Concomitant]
     Active Substance: HYDROMORPHONE HYDROCHLORIDE
     Dosage: 16 MG
     Route: 048
  9. TRANDATE [Concomitant]
     Active Substance: LABETALOL HYDROCHLORIDE
     Dosage: 20 MG Q4H PRN
     Route: 042
  10. DULERA [Concomitant]
     Active Substance: FORMOTEROL FUMARATE DIHYDRATE\MOMETASONE FUROATE
     Dosage: 200-5 MCG/ATUATION 2 OUFF BID
  11. BUSPAR [Concomitant]
     Active Substance: BUSPIRONE HYDROCHLORIDE
     Indication: PAIN
     Dosage: 10 MG Q8HPRN
     Route: 048
  12. CATAPRES [Concomitant]
     Active Substance: CLONIDINE HYDROCHLORIDE
     Indication: TACHYCARDIA
     Route: 048
  13. LOPRESSOR [Concomitant]
     Active Substance: METOPROLOL TARTRATE
     Indication: SECONDARY HYPERTENSION
     Route: 048
  14. ZOFRAN-ODT [Concomitant]
     Indication: METASTASES TO LIVER
     Dosage: 4 MG Q4H PRN
     Route: 048
  15. OXYCONTIN [Concomitant]
     Active Substance: OXYCODONE HYDROCHLORIDE
     Route: 048
  16. HEPARIN [Concomitant]
     Active Substance: HEPARIN SODIUM
     Route: 058
  17. POTASSIUM CHLORIDE. [Concomitant]
     Active Substance: POTASSIUM CHLORIDE
     Dosage: 40 MEQ IN 100 ML WATER ONCE
     Route: 042
  18. DULCOLAX NOS [Concomitant]
     Active Substance: BISACODYL OR DOCUSATE SODIUM
     Dosage: 10 MG DAILY PRN
     Route: 054
  19. REGLAN [Concomitant]
     Active Substance: METOCLOPRAMIDE HYDROCHLORIDE
     Indication: NAUSEA
     Dosage: 5 MG Q4H PRN
     Route: 048
  20. MIRALAX [Concomitant]
     Active Substance: POLYETHYLENE GLYCOL 3350
     Indication: PAIN
     Route: 048
  21. ZOFRAN-ODT [Concomitant]
     Indication: LIVER DISORDER
     Dosage: 4 MG Q4H PRN
     Route: 048
  22. OXYCONTIN [Concomitant]
     Active Substance: OXYCODONE HYDROCHLORIDE
     Route: 048
  23. PROTONIX [Concomitant]
     Active Substance: PANTOPRAZOLE SODIUM
     Route: 048
  24. LYNPARZA [Suspect]
     Active Substance: OLAPARIB
     Indication: OESTROGEN RECEPTOR POSITIVE BREAST CANCER
     Route: 048
     Dates: start: 201601
  25. COLACE [Concomitant]
     Active Substance: DOCUSATE SODIUM
     Indication: CONSTIPATION
     Dosage: 100 MG BID PRN
     Route: 048
  26. REGLAN [Concomitant]
     Active Substance: METOCLOPRAMIDE HYDROCHLORIDE
     Indication: VOMITING
     Dosage: 5 MG Q4H PRN
     Route: 048
  27. REMERON [Concomitant]
     Active Substance: MIRTAZAPINE
     Indication: TACHYCARDIA
  28. PRILOSEC [Concomitant]
     Active Substance: OMEPRAZOLE MAGNESIUM
     Route: 048
  29. PERICOLACE [Concomitant]
     Indication: CONSTIPATION
     Dosage: 8.6/50 MG 2 TABLET BID
     Route: 048

REACTIONS (5)
  - Fatigue [Recovering/Resolving]
  - Oedema peripheral [Unknown]
  - Sinus tachycardia [Unknown]
  - Breast oedema [Unknown]
  - Hypoalbuminaemia [Unknown]
